FAERS Safety Report 25125288 (Version 2)
Quarter: 2025Q2

REPORT INFORMATION
  Report Type: Spontaneous
  Country: US (occurrence: US)
  Receive Date: 20250326
  Receipt Date: 20250517
  Transmission Date: 20250717
  Serious: Yes (Hospitalization, Other)
  Sender: AMGEN
  Company Number: US-AMGEN-USASP2025056778

PATIENT
  Age: 84 Year
  Sex: Female

DRUGS (5)
  1. REPATHA [Suspect]
     Active Substance: EVOLOCUMAB
     Indication: Hypercholesterolaemia
     Dosage: 140 MILLIGRAM, Q2WK
     Route: 058
  2. REPATHA [Suspect]
     Active Substance: EVOLOCUMAB
     Indication: Blood cholesterol abnormal
  3. REPATHA [Suspect]
     Active Substance: EVOLOCUMAB
     Indication: Blood cholesterol increased
  4. FISH OIL [Concomitant]
     Active Substance: FISH OIL
  5. POTASSIUM [Concomitant]
     Active Substance: POTASSIUM

REACTIONS (9)
  - Cardiac failure [Unknown]
  - Diabetes mellitus [Unknown]
  - Chondrocalcinosis [Recovering/Resolving]
  - Umbilical hernia [Unknown]
  - Ulcer [Recovering/Resolving]
  - Irritable bowel syndrome [Unknown]
  - Drug dose omission by device [Unknown]
  - Device difficult to use [Unknown]
  - Thyroid disorder [Unknown]

NARRATIVE: CASE EVENT DATE: 20241215
